FAERS Safety Report 25964686 (Version 1)
Quarter: 2025Q4

REPORT INFORMATION
  Report Type: Spontaneous
  Country: JP (occurrence: JP)
  Receive Date: 20251027
  Receipt Date: 20251027
  Transmission Date: 20260118
  Serious: Yes (Other)
  Sender: UCB
  Company Number: JP-UCBJ-CD202514143UCBPHAPROD

PATIENT
  Age: 16 Year

DRUGS (1)
  1. FINTEPLA [Suspect]
     Active Substance: FENFLURAMINE
     Indication: Lennox-Gastaut syndrome
     Dosage: 0.35 MILLIGRAM/KILOGRAM, ONCE DAILY (QD)

REACTIONS (3)
  - Epilepsy [Unknown]
  - Prescribed overdose [Unknown]
  - Off label use [Unknown]
